FAERS Safety Report 16184079 (Version 1)
Quarter: 2019Q2

REPORT INFORMATION
  Report Type: Spontaneous
  Country: US (occurrence: US)
  Receive Date: 20190410
  Receipt Date: 20190410
  Transmission Date: 20190711
  Serious: Yes (Hospitalization)
  Sender: FDA-Public Use
  Company Number: None

PATIENT
  Age: 39 Year
  Sex: Male

DRUGS (13)
  1. OXYCODONE [Concomitant]
     Active Substance: OXYCODONE
  2. VALGANICICLOVIR [Concomitant]
  3. MAVYRET [Concomitant]
     Active Substance: GLECAPREVIR\PIBRENTASVIR
     Dates: start: 20190129
  4. OMEPRAZOLE. [Concomitant]
     Active Substance: OMEPRAZOLE
  5. FUROSEMIDE. [Concomitant]
     Active Substance: FUROSEMIDE
  6. PREDNISONE. [Concomitant]
     Active Substance: PREDNISONE
  7. MYCOPHENOLIC [Suspect]
     Active Substance: MYCOPHENOLIC ACID
     Indication: LIVER TRANSPLANT
     Route: 048
     Dates: start: 20181107
  8. SERTRALINE [Concomitant]
     Active Substance: SERTRALINE HYDROCHLORIDE
  9. METFORMIN [Concomitant]
     Active Substance: METFORMIN HYDROCHLORIDE
  10. AMLODIPINE [Concomitant]
     Active Substance: AMLODIPINE BESYLATE
  11. TACROLIMUS. [Suspect]
     Active Substance: TACROLIMUS
     Indication: LIVER TRANSPLANT
     Route: 048
     Dates: start: 20181109
  12. BACTRIM [Concomitant]
     Active Substance: SULFAMETHOXAZOLE\TRIMETHOPRIM
  13. URSIODILOL [Concomitant]

REACTIONS (1)
  - Pancreatitis [None]

NARRATIVE: CASE EVENT DATE: 20190328
